FAERS Safety Report 9453731 (Version 1)
Quarter: 2013Q1

REPORT INFORMATION
  Report Type: Not Available
  Country: US (occurrence: US)
  Receive Date: 20120321
  Receipt Date: 20120321
  Transmission Date: 20140127
  Serious: Yes (Other)
  Sender: FDA-Public Use
  Company Number: US-LUNDBECK-DKLU1076033

PATIENT
  Sex: Male

DRUGS (6)
  1. SABRIL     (TABLET) [Suspect]
     Indication: COMPLEX PARTIAL SEIZURES
     Route: 048
     Dates: start: 20111118
  2. SABRIL     (TABLET) [Suspect]
     Indication: EPILEPSY
     Route: 048
  3. SABRIL     (TABLET) [Suspect]
     Dosage: 6 TABLETS
     Route: 048
     Dates: start: 20120125
  4. LYRICA [Concomitant]
     Indication: PRODUCT USED FOR UNKNOWN INDICATION
  5. DEPAKOTE [Concomitant]
     Indication: PRODUCT USED FOR UNKNOWN INDICATION
  6. TRILEPTAL [Concomitant]
     Indication: PRODUCT USED FOR UNKNOWN INDICATION

REACTIONS (6)
  - Vision blurred [Not Recovered/Not Resolved]
  - Eye pruritus [Not Recovered/Not Resolved]
  - Eye irritation [Not Recovered/Not Resolved]
  - Lacrimation increased [Not Recovered/Not Resolved]
  - Headache [Recovered/Resolved]
  - Vomiting [Recovered/Resolved]
